FAERS Safety Report 8233883-8 (Version None)
Quarter: 2012Q1

REPORT INFORMATION
  Report Type: 
  Country: None (occurrence: None)
  Receive Date: 20120326
  Receipt Date: 20120312
  Transmission Date: 20120608
  Serious: Yes (Hospitalization, Other)
  Sender: FDA-Public Use
  Company Number: US-SANOFI-AVENTIS-2012SA017110

PATIENT
  Sex: Male

DRUGS (1)
  1. LANTUS [Suspect]
     Indication: TYPE 2 DIABETES MELLITUS
     Dosage: DOSE:45 UNIT(S)
     Route: 058

REACTIONS (6)
  - CEREBROVASCULAR ACCIDENT [None]
  - CAROTID ARTERY STENOSIS [None]
  - MYOCARDIAL INFARCTION [None]
  - GANGRENE [None]
  - PERIPHERAL VASCULAR DISORDER [None]
  - WOUND INFECTION [None]
